FAERS Safety Report 5562134-8 (Version None)
Quarter: 2007Q4

REPORT INFORMATION
  Report Type: 
  Country: None (occurrence: None)
  Receive Date: 20071215
  Receipt Date: 20061121
  Transmission Date: 20080405
  Serious: No
  Sender: FDA-Public Use
  Company Number: US-AMGEN-US195991

PATIENT
  Sex: Female
  Weight: 85.4 kg

DRUGS (2)
  1. ENBREL [Suspect]
     Indication: PSORIATIC ARTHROPATHY
     Route: 058
     Dates: start: 20031117, end: 20061009
  2. CLINORIL [Concomitant]
     Route: 065
     Dates: start: 20040701

REACTIONS (3)
  - DERMAL CYST [None]
  - HORDEOLUM [None]
  - NASOPHARYNGITIS [None]
